FAERS Safety Report 5733026-6 (Version None)
Quarter: 2008Q2

REPORT INFORMATION
  Report Type: 
  Country: None (occurrence: None)
  Receive Date: 20080509
  Receipt Date: 20080429
  Transmission Date: 20081010
  Serious: Yes (Hospitalization, Other)
  Sender: FDA-Public Use
  Company Number: US-BAYER-200820026NA

PATIENT
  Age: 53 Year
  Sex: Female
  Weight: 71 kg

DRUGS (39)
  1. NEXAVAR [Suspect]
     Indication: ACUTE MYELOID LEUKAEMIA
     Dosage: TOTAL DAILY DOSE: 800 MG  UNIT DOSE: 200 MG
     Route: 048
     Dates: start: 20080401, end: 20080407
  2. IDARUBICIN HCL [Suspect]
     Indication: ACUTE MYELOID LEUKAEMIA
     Route: 042
     Dates: start: 20080403, end: 20080405
  3. CYTARABINE [Suspect]
     Indication: ACUTE MYELOID LEUKAEMIA
     Route: 042
     Dates: start: 20080403, end: 20080406
  4. ACETAMINOPHEN [Concomitant]
     Route: 048
  5. ACYCLOVIR SODIUM [Concomitant]
     Dosage: TOTAL DAILY DOSE: 700 MG
     Route: 042
  6. CALCIUM CARBONATE [Concomitant]
     Route: 048
  7. CALCIUM CARBONATE [Concomitant]
  8. CARVEDILOL [Concomitant]
     Dosage: TOTAL DAILY DOSE: 12.50 MG
     Route: 048
  9. CASPOFUNGIN ACETATE [Concomitant]
     Dosage: TOTAL DAILY DOSE: 50 MG
     Route: 042
  10. CIPROFLOXACIN [Concomitant]
     Dosage: TOTAL DAILY DOSE: 400 ML
     Route: 042
  11. DEXTROSE [Concomitant]
  12. DIPHENHYDRAMINE HCL [Concomitant]
     Route: 042
  13. FILGRASTIM [Concomitant]
     Route: 023
  14. FUROSEMIDE [Concomitant]
     Dosage: TOTAL DAILY DOSE: 80 MG
     Route: 048
  15. HUMULIN R [Concomitant]
     Route: 023
  16. IPRATROPIUM BROMIDE [Concomitant]
     Route: 055
  17. LISINOPRIL [Concomitant]
     Dosage: TOTAL DAILY DOSE: 20 MG
     Route: 048
  18. MAGNESIUM OXIDE SUPPLEMENT [Concomitant]
     Dosage: TOTAL DAILY DOSE: 1500 MG
     Route: 048
  19. MAGNESIUM OXIDE SUPPLEMENT [Concomitant]
     Route: 048
  20. MAGNESIUM OXIDE SUPPLEMENT [Concomitant]
     Route: 048
  21. MAGNESIUM SULFATE [Concomitant]
     Route: 042
  22. MEROPENEM [Concomitant]
     Dosage: TOTAL DAILY DOSE: 2 G
     Route: 042
  23. METHYLPREDNISOLONE SODIUM SUCCINATE [Concomitant]
     Dosage: TOTAL DAILY DOSE: 50 MG
     Route: 042
  24. PANTOPRAZOLE SODIUM [Concomitant]
     Indication: PROPHYLAXIS AGAINST GASTROINTESTINAL ULCER
     Dosage: TOTAL DAILY DOSE: 40 MG
     Route: 048
  25. POTASSIUM SODIUM PHOSPHATES [Concomitant]
     Route: 048
  26. POTASSIUM SODIUM PHOSPHATES [Concomitant]
     Route: 048
  27. POTASSIUM CHLORIDE [Concomitant]
     Route: 042
  28. POTASSIUM CHLORIDE [Concomitant]
  29. POTASSIUM CHLORIDE [Concomitant]
  30. POTASSIUM CHLORIDE [Concomitant]
     Route: 048
  31. POTASSIUM CHLORIDE [Concomitant]
     Route: 048
  32. PROCHLORPERAZINE MALEATE [Concomitant]
     Route: 048
  33. PROPOXYPHENE HYDROCHLORIDE [Concomitant]
     Route: 048
  34. PROPOXYPHENE HYDROCHLORIDE [Concomitant]
     Route: 048
  35. SODIUM PHOSPHATES [Concomitant]
     Route: 048
  36. VANCOMYCIN HYDROCHLORIDE [Concomitant]
     Dosage: TOTAL DAILY DOSE: 1500 MG
     Route: 042
  37. VORICONAZOLE [Concomitant]
     Dosage: TOTAL DAILY DOSE: 450 MG
     Route: 042
  38. ZOLPIDEM TARTRATE [Concomitant]
     Route: 048
  39. TEMAZEPAM [Concomitant]
     Indication: SLEEP DISORDER

REACTIONS (4)
  - ALANINE AMINOTRANSFERASE INCREASED [None]
  - ATRIAL FIBRILLATION [None]
  - CARDIAC FAILURE CONGESTIVE [None]
  - PNEUMONIA [None]
